FAERS Safety Report 9202842 (Version 2)
Quarter: 2013Q2

REPORT INFORMATION
  Report Type: Spontaneous
  Country: US (occurrence: US)
  Receive Date: 20130401
  Receipt Date: 20130425
  Transmission Date: 20140414
  Serious: Yes (Hospitalization, Disabling)
  Sender: FDA-Public Use
  Company Number: US-009507513-1304USA000088

PATIENT
  Age: 64 Year
  Sex: Female

DRUGS (7)
  1. TEMODAR [Suspect]
     Indication: OLIGODENDROGLIOMA
     Dosage: 100 MG DAILY
     Route: 048
     Dates: start: 20130125, end: 20130318
  2. ATENOLOL [Concomitant]
  3. ATORVASTATIN [Concomitant]
  4. LEVOTHYROXINE SODIUM [Concomitant]
  5. ONDANSETRON [Concomitant]
  6. COUMADIN [Concomitant]
  7. AZITHROMYCIN [Concomitant]

REACTIONS (2)
  - Hypernatraemia [Not Recovered/Not Resolved]
  - Diabetes insipidus [Not Recovered/Not Resolved]
